FAERS Safety Report 17787867 (Version 2)
Quarter: 2020Q2

REPORT INFORMATION
  Report Type: Spontaneous
  Country: AU (occurrence: AU)
  Receive Date: 20200514
  Receipt Date: 20200629
  Transmission Date: 20200714
  Serious: Yes (Death, Hospitalization)
  Sender: FDA-Public Use
  Company Number: AU-MYLANLABS-2020M1048902

PATIENT
  Sex: Male

DRUGS (1)
  1. CLOZARIL [Suspect]
     Active Substance: CLOZAPINE
     Indication: SCHIZOPHRENIA
     Dosage: 350 MILLIGRAM, PM
     Route: 048
     Dates: start: 19950118, end: 20200430

REACTIONS (2)
  - Metastatic malignant melanoma [Fatal]
  - Respiratory distress [Fatal]
